FAERS Safety Report 21672454 (Version 1)
Quarter: 2022Q4

REPORT INFORMATION
  Report Type: Spontaneous
  Country: US (occurrence: None)
  Receive Date: 20221201
  Receipt Date: 20221201
  Transmission Date: 20230113
  Serious: Yes (Death)
  Sender: FDA-Public Use
  Company Number: None

PATIENT
  Age: 88 Year
  Sex: Male

DRUGS (12)
  1. ERLEADA [Suspect]
     Active Substance: APALUTAMIDE
     Indication: Prostate cancer
     Dosage: FREQUENCY : DAILY;?
     Route: 048
  2. VITAMIN D [Concomitant]
     Active Substance: VITAMIN D NOS
  3. ATORVASTATIN [Concomitant]
     Active Substance: ATORVASTATIN
  4. DOCUSATE [Concomitant]
     Active Substance: DOCUSATE
  5. LISINOPRIL [Concomitant]
     Active Substance: LISINOPRIL
  6. ISOSORBIDE [Concomitant]
     Active Substance: ISOSORBIDE
  7. INSULIN NOS [Concomitant]
     Active Substance: INSULIN NOS
  8. AMLODIPINE [Concomitant]
     Active Substance: AMLODIPINE BESYLATE
  9. TORSEMIDE [Concomitant]
     Active Substance: TORSEMIDE
  10. METOPROLOL [Concomitant]
     Active Substance: METOPROLOL
  11. CALCIUM [Concomitant]
     Active Substance: CALCIUM
  12. HYDRALAZINE [Concomitant]
     Active Substance: HYDRALAZINE HYDROCHLORIDE

REACTIONS (1)
  - Myocardial infarction [None]

NARRATIVE: CASE EVENT DATE: 20221115
